FAERS Safety Report 10742524 (Version 3)
Quarter: 2015Q1

REPORT INFORMATION
  Report Type: Report from Study
  Country: PL (occurrence: PL)
  Receive Date: 20150127
  Receipt Date: 20150313
  Transmission Date: 20150721
  Serious: Yes (Life-Threatening, Hospitalization)
  Sender: FDA-Public Use
  Company Number: PL-GILEAD-2015-0131821

PATIENT
  Age: 84 Year
  Sex: Male
  Weight: 91.5 kg

DRUGS (36)
  1. BENDAMUSTINE [Suspect]
     Active Substance: BENDAMUSTINE
     Dosage: UNK
     Route: 042
  2. RITUXIMAB [Suspect]
     Active Substance: RITUXIMAB
     Indication: CHRONIC LYMPHOCYTIC LEUKAEMIA
     Dosage: UNK
     Route: 042
  3. PYRALGINA SPRINT [Concomitant]
     Dates: start: 20150109, end: 20150120
  4. BENDAMUSTINE [Suspect]
     Active Substance: BENDAMUSTINE
     Dosage: 181 MG, ONCE
     Route: 042
     Dates: start: 20141113, end: 20141113
  5. BENDAMUSTINE [Suspect]
     Active Substance: BENDAMUSTINE
     Dosage: UNK
     Route: 042
  6. KARNIDIN [Concomitant]
     Indication: HYPERTENSION
     Route: 048
     Dates: start: 2004
  7. CLEXANE [Concomitant]
     Active Substance: ENOXAPARIN SODIUM
     Indication: ATRIAL FIBRILLATION
     Route: 058
     Dates: start: 20150109, end: 20150120
  8. HYDROXYZINUM [Concomitant]
     Indication: HYPERTENSION
     Route: 048
     Dates: start: 20150109, end: 20150120
  9. IDELALISIB [Suspect]
     Active Substance: IDELALISIB
     Indication: CHRONIC LYMPHOCYTIC LEUKAEMIA
     Dosage: 150 MG, BID
     Route: 048
     Dates: start: 20141113
  10. BENDAMUSTINE [Suspect]
     Active Substance: BENDAMUSTINE
     Dosage: UNK
     Route: 042
  11. BENDAMUSTINE [Suspect]
     Active Substance: BENDAMUSTINE
     Dosage: UNK
     Route: 042
  12. RITUXIMAB [Suspect]
     Active Substance: RITUXIMAB
     Dosage: UNK
     Route: 042
  13. ONDANSETRON [Concomitant]
     Active Substance: ONDANSETRON
     Route: 042
     Dates: start: 20141211, end: 20141211
  14. PARACETAMOL [Concomitant]
     Active Substance: ACETAMINOPHEN
     Dosage: UNK
     Route: 065
     Dates: start: 20150109, end: 20150120
  15. CLEXANE [Concomitant]
     Active Substance: ENOXAPARIN SODIUM
     Indication: THROMBOSIS PROPHYLAXIS
  16. FLUKONAZOL [Concomitant]
     Active Substance: FLUCONAZOLE
     Indication: FUNGAL INFECTION
     Route: 065
     Dates: start: 20150109, end: 20150120
  17. AMOXICILLIN/CLAVULANIC ACID [Concomitant]
     Active Substance: AMOXICILLIN\CLAVULANIC ACID
     Route: 065
     Dates: start: 20150109, end: 20150120
  18. BENDAMUSTINE [Suspect]
     Active Substance: BENDAMUSTINE
     Dosage: 181 MG, ONCE
     Route: 042
     Dates: start: 20141114, end: 20141114
  19. PARACETAMOL [Concomitant]
     Active Substance: ACETAMINOPHEN
     Dosage: UNK
     Route: 048
     Dates: start: 20141211, end: 20141211
  20. BETO ZK [Concomitant]
     Active Substance: METOPROLOL SUCCINATE
     Indication: HYPERTENSION
     Route: 048
     Dates: start: 2004
  21. SPIRONOL [Concomitant]
     Active Substance: SPIRONOLACTONE
     Indication: HYPERTENSION
     Route: 048
     Dates: start: 20150109
  22. CLORANXEN [Concomitant]
     Route: 048
     Dates: start: 20150109, end: 20150120
  23. BENDAMUSTINE [Suspect]
     Active Substance: BENDAMUSTINE
     Dosage: UNK
     Route: 042
  24. RITUXIMAB [Suspect]
     Active Substance: RITUXIMAB
     Dosage: 1010 MG, ONCE
     Route: 042
     Dates: start: 20141211, end: 20141211
  25. RITUXIMAB [Suspect]
     Active Substance: RITUXIMAB
     Dosage: 757 MG, ONCE
     Route: 042
     Dates: start: 20141113, end: 20141113
  26. ACENOCUMAROL [Concomitant]
     Active Substance: ACENOCOUMAROL
     Indication: ATRIAL FIBRILLATION
     Route: 048
     Dates: start: 2004
  27. PRAMIL [Concomitant]
     Indication: HYPERTENSION
     Route: 048
     Dates: start: 2004
  28. HYDROXYZINUM [Concomitant]
     Indication: INSOMNIA
  29. FUROSEMID                          /00032601/ [Concomitant]
     Active Substance: FUROSEMIDE
     Indication: HYPERTENSION
     Route: 048
     Dates: start: 2004
  30. ATROX [Concomitant]
     Indication: HYPERCHOLESTEROLAEMIA
     Route: 048
     Dates: start: 2004
  31. KALIUM                             /00031402/ [Concomitant]
     Indication: HYPOKALAEMIA
     Dates: start: 20150109, end: 20150120
  32. BENDAMUSTINE [Suspect]
     Active Substance: BENDAMUSTINE
     Dosage: 181 MG, ONCE
     Route: 042
     Dates: start: 20141211, end: 20141211
  33. BENDAMUSTINE [Suspect]
     Active Substance: BENDAMUSTINE
     Dosage: 181 MG, ONCE
     Route: 042
     Dates: start: 20141212, end: 20141212
  34. TRAMAL [Concomitant]
     Active Substance: TRAMADOL
     Route: 065
     Dates: start: 20150109, end: 20150120
  35. BENDAMUSTINE [Suspect]
     Active Substance: BENDAMUSTINE
     Indication: CHRONIC LYMPHOCYTIC LEUKAEMIA
     Dosage: UNK
     Route: 042
  36. CORHYDRON                          /00028602/ [Concomitant]
     Dosage: UNK
     Route: 042
     Dates: start: 20141211, end: 20141211

REACTIONS (1)
  - Anaemia [Recovered/Resolved]

NARRATIVE: CASE EVENT DATE: 20150109
